FAERS Safety Report 10882031 (Version 2)
Quarter: 2015Q1

REPORT INFORMATION
  Report Type: Report from Study
  Country: US (occurrence: US)
  Receive Date: 20150303
  Receipt Date: 20150313
  Transmission Date: 20150721
  Serious: Yes (Life-Threatening, Hospitalization)
  Sender: FDA-Public Use
  Company Number: US-009507513-1501USA000382

PATIENT
  Age: 38 Year
  Sex: Male
  Weight: 124.5 kg

DRUGS (3)
  1. CYTARABINE. [Suspect]
     Active Substance: CYTARABINE
     Indication: ACUTE MYELOID LEUKAEMIA
     Dosage: 100 MG/M2/DAY, CONTINUOUS INFUSION, DAYS 1-7 (7+3 DOSING; TOTAL DOSE ADMINISTERED 1736 MG)
     Route: 042
     Dates: start: 20150101, end: 20150108
  2. VORINOSTAT [Suspect]
     Active Substance: VORINOSTAT
     Indication: ACUTE MYELOID LEUKAEMIA
     Dosage: 500 MG, TID, ON DAYS 1-3 (TOTAL DOSE ADMINISTERED 1000 MG, RECEIVED ONLY 2 DOSES)
     Route: 048
     Dates: start: 20141229, end: 20141229
  3. IDARUBICIN [Suspect]
     Active Substance: IDARUBICIN
     Indication: ACUTE MYELOID LEUKAEMIA
     Dosage: 9 MG/M2 IV PUSH DAYS 1-3; (7+3 INDUCTION; TOTAL DOSE ADMINISTERED 63 MG)
     Route: 042
     Dates: start: 20150107, end: 20150109

REACTIONS (17)
  - Muscular weakness [Recovered/Resolved]
  - Decreased appetite [Recovered/Resolved]
  - Hypotension [Recovered/Resolved]
  - Tumour lysis syndrome [Recovered/Resolved]
  - Acidosis [Recovered/Resolved]
  - Hyperglycaemia [Recovered/Resolved]
  - Dyspnoea [Recovered/Resolved]
  - Hypoxia [Recovered/Resolved]
  - Pulmonary oedema [Recovered/Resolved]
  - Sepsis [Recovered/Resolved]
  - Acute respiratory distress syndrome [Recovered/Resolved]
  - Colitis [Recovered/Resolved]
  - Lung infection [Recovered/Resolved]
  - Acute kidney injury [Recovered/Resolved]
  - Respiratory failure [Recovered/Resolved]
  - Oedema peripheral [Recovered/Resolved]
  - Large intestinal haemorrhage [Recovered/Resolved]

NARRATIVE: CASE EVENT DATE: 20141229
